FAERS Safety Report 16096358 (Version 5)
Quarter: 2021Q1

REPORT INFORMATION
  Report Type: Report from Study
  Country: US (occurrence: US)
  Receive Date: 20190320
  Receipt Date: 20210208
  Transmission Date: 20210419
  Serious: Yes (Other)
  Sender: FDA-Public Use
  Company Number: US-EMD SERONO-9079450

PATIENT
  Age: 48 Year
  Sex: Male
  Weight: 127 kg

DRUGS (1)
  1. REBIF [Suspect]
     Active Substance: INTERFERON BETA-1A
     Indication: MULTIPLE SCLEROSIS
     Dosage: REBIJECT II, REBIF PREFILLED SYRINGE
     Route: 058
     Dates: start: 20070117

REACTIONS (10)
  - Hypoaesthesia [Unknown]
  - Hypertension [Unknown]
  - Weight decreased [Not Recovered/Not Resolved]
  - Blood glucose decreased [Unknown]
  - Spinal operation [Unknown]
  - Injection site pain [Unknown]
  - Head injury [Unknown]
  - Lack of injection site rotation [Unknown]
  - Type 2 diabetes mellitus [Unknown]
  - Loss of consciousness [Unknown]

NARRATIVE: CASE EVENT DATE: 2014
